FAERS Safety Report 11789049 (Version 2)
Quarter: 2015Q4

REPORT INFORMATION
  Report Type: Report from Study
  Country: AR (occurrence: AR)
  Receive Date: 20151201
  Receipt Date: 20151215
  Transmission Date: 20160305
  Serious: Yes (Other)
  Sender: FDA-Public Use
  Company Number: PHHY2015AR155721

PATIENT
  Age: 64 Year
  Sex: Female

DRUGS (3)
  1. DIOVAN [Suspect]
     Active Substance: VALSARTAN
     Dosage: 1.5 DF (80 MG), QD
     Route: 065
     Dates: start: 201403
  2. DIOVAN [Suspect]
     Active Substance: VALSARTAN
     Dosage: 2 DF, QD
     Route: 065
     Dates: start: 201410
  3. DIOVAN [Suspect]
     Active Substance: VALSARTAN
     Indication: CARDIAC DISORDER
     Dosage: 1 DF (80 MG), QD (STARTED FROM 3 YEARS AGO)
     Route: 065
     Dates: end: 201401

REACTIONS (5)
  - Blood pressure systolic increased [Recovered/Resolved]
  - Product use issue [Unknown]
  - Aortic aneurysm [Recovering/Resolving]
  - Blood pressure increased [Recovered/Resolved]
  - Wrong technique in product usage process [Unknown]

NARRATIVE: CASE EVENT DATE: 201410
